FAERS Safety Report 9549183 (Version 1)
Quarter: 2013Q3

REPORT INFORMATION
  Report Type: Spontaneous
  Country: US (occurrence: US)
  Receive Date: 20130924
  Receipt Date: 20130924
  Transmission Date: 20140515
  Serious: No
  Sender: FDA-Public Use
  Company Number: US-009507513-1309USA005069

PATIENT
  Age: 62 Year
  Sex: Male

DRUGS (6)
  1. CASPOFUNGIN ACETATE [Suspect]
     Indication: BRONCHOPULMONARY ASPERGILLOSIS
     Dosage: UNK
  2. VORICONAZOLE [Suspect]
     Indication: BRONCHOPULMONARY ASPERGILLOSIS
     Dosage: UNK
  3. WARFARIN [Concomitant]
     Dosage: UNK
  4. RITUXIMAB [Concomitant]
     Dosage: UNK
  5. PREDNISONE [Concomitant]
     Dosage: UNK
  6. CYCLOPHOSPHAMIDE [Concomitant]
     Dosage: UNK

REACTIONS (1)
  - Drug ineffective [Unknown]
